FAERS Safety Report 8316997-3 (Version None)
Quarter: 2012Q2

REPORT INFORMATION
  Report Type: 
  Country: None (occurrence: None)
  Receive Date: 20120425
  Receipt Date: 20120418
  Transmission Date: 20120825
  Serious: Yes (Hospitalization)
  Sender: FDA-Public Use
  Company Number: 2012SP007454

PATIENT
  Age: 68 Year
  Sex: Male

DRUGS (7)
  1. PROCHLORPERAZINE MALEATE [Concomitant]
  2. LANSOPRAZOLE [Concomitant]
  3. MAGNESIUM OXIDE [Concomitant]
  4. LUVOX [Suspect]
     Indication: DEPRESSION
     Dosage: 50 MG;BID;PO
     Route: 048
     Dates: start: 20100801
  5. ETIZOLAM [Concomitant]
  6. MIRTAZAPINE [Suspect]
     Indication: DEPRESSION
     Dosage: 15 MG;QD;PO
     Route: 048
     Dates: start: 20100801
  7. TRAMADOL HYDROHLORIDE [Suspect]
     Indication: CANCER PAIN
     Dosage: 25 MG;TID;PO
     Route: 048
     Dates: start: 20110317, end: 20110318

REACTIONS (5)
  - DRUG INTERACTION [None]
  - SEROTONIN SYNDROME [None]
  - FACIAL SPASM [None]
  - DYSARTHRIA [None]
  - TREMOR [None]
